FAERS Safety Report 17367312 (Version 1)
Quarter: 2020Q1

REPORT INFORMATION
  Report Type: Spontaneous
  Country: US (occurrence: US)
  Receive Date: 20200204
  Receipt Date: 20200204
  Transmission Date: 20200409
  Serious: Yes (Other)
  Sender: FDA-Public Use
  Company Number: US-BOIRON INC.-2020BOR00025

PATIENT
  Age: 48 Year
  Sex: Male

DRUGS (1)
  1. OSCILLOCOCCINUM [Suspect]
     Active Substance: CAIRINA MOSCHATA HEART/LIVER AUTOLYSATE
     Indication: INFLUENZA
     Dosage: UNK UNK, 2X/DAY
     Dates: start: 20200117

REACTIONS (5)
  - Oral mucosal blistering [Not Recovered/Not Resolved]
  - Oral mucosal eruption [Not Recovered/Not Resolved]
  - Rash [Not Recovered/Not Resolved]
  - Drug ineffective [Not Recovered/Not Resolved]
  - Oropharyngeal blistering [Not Recovered/Not Resolved]

NARRATIVE: CASE EVENT DATE: 20200117
